FAERS Safety Report 24153347 (Version 2)
Quarter: 2024Q3

REPORT INFORMATION
  Report Type: Spontaneous
  Country: DE (occurrence: None)
  Receive Date: 20240730
  Receipt Date: 20240913
  Transmission Date: 20241016
  Serious: Yes (Other)
  Sender: ASTRAZENECA
  Company Number: 2024A170355

PATIENT
  Age: 72 Year
  Sex: Male

DRUGS (1)
  1. TEZSPIRE [Suspect]
     Active Substance: TEZEPELUMAB-EKKO
     Indication: Asthma
     Route: 058
     Dates: start: 20240228, end: 20240627

REACTIONS (3)
  - Urticaria [Unknown]
  - Blister [Unknown]
  - Angioedema [Unknown]

NARRATIVE: CASE EVENT DATE: 20240301
